FAERS Safety Report 8104597-X (Version None)
Quarter: 2012Q1

REPORT INFORMATION
  Report Type: 
  Country: None (occurrence: None)
  Receive Date: 20120201
  Receipt Date: 20120117
  Transmission Date: 20120608
  Serious: Yes (Death, Hospitalization)
  Sender: FDA-Public Use
  Company Number: JP-WATSON-2012-01332

PATIENT
  Age: 61 Year
  Sex: Male

DRUGS (2)
  1. BETAMETHASONE [Suspect]
     Indication: GLIOBLASTOMA
     Dosage: X3 DAYS POST OPERATION
     Route: 042
  2. TEMOZOLOMIDE [Suspect]

REACTIONS (1)
  - HEPATITIS B [None]
